FAERS Safety Report 20890691 (Version 1)
Quarter: 2022Q2

REPORT INFORMATION
  Report Type: Spontaneous
  Country: US (occurrence: US)
  Receive Date: 20220530
  Receipt Date: 20220530
  Transmission Date: 20220721
  Serious: No
  Sender: FDA-Public Use
  Company Number: US-BAUSCH-BL-2022-012566

PATIENT
  Sex: Female

DRUGS (3)
  1. TIMOPTIC [Suspect]
     Active Substance: TIMOLOL MALEATE
     Indication: Product used for unknown indication
     Route: 065
  2. TIMOPTIC [Suspect]
     Active Substance: TIMOLOL MALEATE
  3. TIMOLOL MALEATE [Suspect]
     Active Substance: TIMOLOL MALEATE
     Indication: Product used for unknown indication
     Route: 065

REACTIONS (3)
  - Reaction to preservatives [Unknown]
  - Inability to afford medication [Unknown]
  - Product substitution issue [Unknown]
